FAERS Safety Report 4565129-6 (Version None)
Quarter: 2005Q1

REPORT INFORMATION
  Report Type: 
  Country: None (occurrence: None)
  Receive Date: 20050126
  Receipt Date: 20050107
  Transmission Date: 20050727
  Serious: Yes (Hospitalization)
  Sender: FDA-Public Use
  Company Number: E128833

PATIENT
  Age: 60 Year
  Sex: Male

DRUGS (7)
  1. OXALIPLATIN [Suspect]
     Indication: COLORECTAL CANCER METASTATIC
     Dosage: 145 MG Q2W
     Route: 042
     Dates: start: 20010425, end: 20010425
  2. FLUOROURACIL [Suspect]
     Dosage: 4200 (400 MG/M2 AS BOLUS THE 600 MG/M2 AS 22-HOUR CONTINUOUS INFUSION ) ON D1, D2; Q2W
     Route: 042
     Dates: start: 20010724, end: 20010725
  3. LEUCOVORIN CALCIUM [Suspect]
     Dosage: 820 MG: 400 MG/M2 AS 2 -HOUR INFUSION ON D1; Q2W
     Route: 042
     Dates: start: 20010724, end: 20010725
  4. LEUPROLIDE ACETATE [Concomitant]
  5. CETIRIZINE HCL [Concomitant]
  6. ROHYPNOL (FLUNITRAZEPAM) [Concomitant]
  7. CYCLOPHOSPHAMIDE [Concomitant]

REACTIONS (4)
  - ANGINA PECTORIS [None]
  - ANXIETY [None]
  - LOSS OF CONSCIOUSNESS [None]
  - MALAISE [None]
